FAERS Safety Report 7823590-5 (Version None)
Quarter: 2011Q4

REPORT INFORMATION
  Report Type: 
  Country: None (occurrence: None)
  Receive Date: 20111019
  Receipt Date: 20111014
  Transmission Date: 20120403
  Serious: Yes (Hospitalization, Other)
  Sender: FDA-Public Use
  Company Number: US-PFIZER INC-2011130986

PATIENT
  Sex: Female

DRUGS (7)
  1. VALIUM [Concomitant]
     Indication: ANXIETY
     Dosage: UNK
     Dates: start: 20070601
  2. CHANTIX [Suspect]
     Dosage: STARTER PACK
     Dates: start: 20090306, end: 20090406
  3. CHANTIX [Suspect]
     Dosage: CONTINUING PACK
     Dates: start: 20090406, end: 20090427
  4. LISINOPRIL [Concomitant]
     Indication: HYPERTENSION
     Dosage: UNK
     Dates: start: 20010101
  5. CHANTIX [Suspect]
     Indication: SMOKING CESSATION THERAPY
     Dosage: STARTER AND CONTINUING PACK
     Dates: start: 20071031, end: 20071101
  6. SYNTHROID [Concomitant]
     Dosage: UNK
     Dates: start: 20010101
  7. LORTAB [Concomitant]
     Indication: PAIN
     Dosage: UNK
     Dates: start: 20040101

REACTIONS (4)
  - SUICIDE ATTEMPT [None]
  - DEPRESSION [None]
  - INTENTIONAL OVERDOSE [None]
  - ANXIETY [None]
